FAERS Safety Report 13581277 (Version 1)
Quarter: 2017Q2

REPORT INFORMATION
  Report Type: Spontaneous
  Country: US (occurrence: US)
  Receive Date: 20170525
  Receipt Date: 20170525
  Transmission Date: 20170830
  Serious: Yes (Disabling)
  Sender: FDA-Public Use
  Company Number: None

PATIENT
  Age: 63 Year
  Sex: Male
  Weight: 78.75 kg

DRUGS (2)
  1. LEVOTHYROXINE. [Concomitant]
     Active Substance: LEVOTHYROXINE
  2. FLOUROURACIL 5% [Suspect]
     Active Substance: FLUOROURACIL SODIUM
     Indication: SKIN CANCER
     Dosage: QUANTITY:1 TUBE;?
     Route: 061
     Dates: start: 20150709, end: 20170309

REACTIONS (5)
  - Disorientation [None]
  - Application site erythema [None]
  - Application site inflammation [None]
  - Eye disorder [None]
  - Eye movement disorder [None]

NARRATIVE: CASE EVENT DATE: 20170308
